FAERS Safety Report 6170329-8 (Version None)
Quarter: 2009Q2

REPORT INFORMATION
  Report Type: 
  Country: None (occurrence: None)
  Receive Date: 20090427
  Receipt Date: 20090427
  Transmission Date: 20091009
  Serious: Yes (Other)
  Sender: FDA-Public Use
  Company Number: None

PATIENT
  Age: 40 Year
  Sex: Female
  Weight: 91.6266 kg

DRUGS (1)
  1. LYRICA [Suspect]

REACTIONS (8)
  - ARTHRALGIA [None]
  - ARTHRITIS [None]
  - JOINT SWELLING [None]
  - LOCAL SWELLING [None]
  - NECK PAIN [None]
  - OEDEMA PERIPHERAL [None]
  - PAIN IN EXTREMITY [None]
  - VISION BLURRED [None]
